FAERS Safety Report 14393121 (Version 1)
Quarter: 2018Q1

REPORT INFORMATION
  Report Type: Spontaneous
  Country: US (occurrence: US)
  Receive Date: 20180113
  Receipt Date: 20180113
  Transmission Date: 20180509
  Serious: Yes (Disabling)
  Sender: FDA-Public Use
  Company Number: None

PATIENT
  Sex: Female
  Weight: 50.4 kg

DRUGS (17)
  1. LEVOFLOXACIN 500 MG TAB ZYD, 500 MG [Suspect]
     Active Substance: LEVOFLOXACIN
     Indication: BRONCHITIS
     Dosage: ?          QUANTITY:10 TABLET(S);?
     Route: 048
     Dates: start: 20171221, end: 20171230
  2. SPIRIVA [Concomitant]
     Active Substance: TIOTROPIUM BROMIDE MONOHYDRATE
  3. LIPITOR [Concomitant]
     Active Substance: ATORVASTATIN CALCIUM
  4. ALEVE [Concomitant]
     Active Substance: NAPROXEN SODIUM
  5. PROTONIX [Concomitant]
     Active Substance: PANTOPRAZOLE SODIUM
  6. MULTI-VITAMIN [Concomitant]
     Active Substance: .ALPHA.-TOCOPHEROL ACETATE, DL-\ASCORBIC ACID\CYANOCOBALAMIN\FLUORIDE ION\FOLIC ACID\NIACIN\PYRIDOXINE\RIBOFLAVIN\THIAMINE\VITAMIN A\VITAMIN D
  7. HYLAND^S LEG CRAMP FORMULA [Concomitant]
  8. SYMBICORT [Concomitant]
     Active Substance: BUDESONIDE\FORMOTEROL FUMARATE DIHYDRATE
  9. POTASSIUM SUPPLEMENT [Concomitant]
     Active Substance: POTASSIUM
  10. METOPROLOL. [Concomitant]
     Active Substance: METOPROLOL
  11. TRAMADOL. [Concomitant]
     Active Substance: TRAMADOL
  12. BP MED [Concomitant]
  13. HYLAND^S RESTFUL LEGS [Concomitant]
     Active Substance: HOMEOPATHICS
  14. TYLENOL [Concomitant]
     Active Substance: ACETAMINOPHEN
  15. PLAVIX [Concomitant]
     Active Substance: CLOPIDOGREL BISULFATE
  16. LEXAPRO [Concomitant]
     Active Substance: ESCITALOPRAM OXALATE
  17. ALBUTEROL. [Concomitant]
     Active Substance: ALBUTEROL

REACTIONS (2)
  - Tendon rupture [None]
  - Arthritis [None]

NARRATIVE: CASE EVENT DATE: 20171223
